FAERS Safety Report 6654057-8 (Version None)
Quarter: 2010Q1

REPORT INFORMATION
  Report Type: 
  Country: None (occurrence: None)
  Receive Date: 20100326
  Receipt Date: 20100316
  Transmission Date: 20100710
  Serious: Yes (Hospitalization, Other)
  Sender: FDA-Public Use
  Company Number: PHHY2009JP31455

PATIENT
  Sex: Female
  Weight: 40 kg

DRUGS (9)
  1. DIOVAN HCT [Suspect]
     Indication: HYPOTENSION
     Dosage: 1 DF (80/12.5 MG) DAILY
     Route: 048
     Dates: start: 20090402, end: 20090521
  2. DIOVAN HCT [Suspect]
     Dosage: 1 DF (80/12.5 MG) DAILY
     Dates: start: 20090523, end: 20090601
  3. ADALAT CC [Concomitant]
     Route: 048
  4. SIFROL [Concomitant]
     Dosage: UNK
     Route: 048
     Dates: start: 20090524
  5. SYMMETREL [Concomitant]
     Dosage: UNK
     Route: 048
     Dates: start: 20090524
  6. ARTANE [Concomitant]
     Dosage: UNK
     Route: 048
     Dates: start: 20090524
  7. MENESIT [Concomitant]
     Indication: PARKINSON'S DISEASE
     Dosage: 3 DF, UNK
     Route: 048
     Dates: start: 20070101
  8. AMARYL [Concomitant]
     Indication: DIABETES MELLITUS
     Dosage: 1 DF, UNK
     Route: 048
     Dates: start: 20070101
  9. LIPITOR [Concomitant]
     Indication: HYPERCHOLESTEROLAEMIA
     Dosage: 1 DF, UNK
     Route: 048
     Dates: start: 20070101

REACTIONS (12)
  - BLOOD PRESSURE INCREASED [None]
  - CONDITION AGGRAVATED [None]
  - DRUG ERUPTION [None]
  - ERYTHEMA [None]
  - GASTRIC ULCER HAEMORRHAGE [None]
  - PARKINSON'S DISEASE [None]
  - PNEUMONIA [None]
  - PRURITUS [None]
  - RASH GENERALISED [None]
  - SKIN DISORDER [None]
  - SKIN EXFOLIATION [None]
  - URTICARIA [None]
